FAERS Safety Report 8485833 (Version 4)
Quarter: 2012Q4

REPORT INFORMATION
  Report Type: 
  Country: US (occurrence: US)
  Receive Date: 20120330
  Receipt Date: 20121213
  Transmission Date: 20130627
  Serious: Yes (Hospitalization, Disabling, Other)
  Sender: FDA-Public Use
  Company Number: US-009507513-1203USA03388

PATIENT

DRUGS (3)
  1. FOSAMAX [Suspect]
     Dosage: 70 mg, UNK
     Route: 048
     Dates: start: 20040503, end: 200808
  2. ALENDRONATE SODIUM [Suspect]
     Indication: OSTEOPENIA
     Dosage: 70 mg, UNK
     Route: 048
     Dates: start: 20080930, end: 200909
  3. SYNTHROID [Concomitant]
     Indication: HYPOTHYROIDISM
     Dosage: UNK
     Dates: start: 1995

REACTIONS (44)
  - Drug hypersensitivity [Unknown]
  - Sinus bradycardia [Unknown]
  - Hyperlipidaemia [Unknown]
  - Insomnia [Unknown]
  - Polyneuropathy [Unknown]
  - Clostridium difficile colitis [Unknown]
  - Lymphadenectomy [Unknown]
  - Urinary tract infection [Unknown]
  - Vitamin D deficiency [Unknown]
  - Oral discomfort [Unknown]
  - Tooth repair [Unknown]
  - Pigmentation lip [Unknown]
  - Oral pain [Unknown]
  - Drug hypersensitivity [Unknown]
  - Diarrhoea [Unknown]
  - Myocardial infarction [Unknown]
  - Jaw disorder [Unknown]
  - Tonsillectomy [Unknown]
  - Postoperative wound infection [Unknown]
  - Bladder dilatation [Unknown]
  - Hypophagia [Unknown]
  - Anaemia [Unknown]
  - Nausea [Unknown]
  - Osteomyelitis [Not Recovered/Not Resolved]
  - Osteonecrosis of jaw [Unknown]
  - Vomiting [Unknown]
  - Tooth fracture [Unknown]
  - Toothache [Unknown]
  - Fistula discharge [Unknown]
  - Hypercholesterolaemia [Not Recovered/Not Resolved]
  - Oral infection [Unknown]
  - Impaired healing [Unknown]
  - Periodontal disease [Unknown]
  - Tooth disorder [Unknown]
  - Sinus disorder [Unknown]
  - Ear infection [Unknown]
  - Rectal polyp [Unknown]
  - Haemorrhoids [Unknown]
  - Diverticulum [Unknown]
  - Hypoglycaemia [Unknown]
  - Type 2 diabetes mellitus [Unknown]
  - Laryngeal disorder [Unknown]
  - Trismus [Recovered/Resolved]
  - Nausea [Unknown]
